FAERS Safety Report 10688574 (Version 2)
Quarter: 2015Q1

REPORT INFORMATION
  Report Type: Report from Study
  Country: US (occurrence: US)
  Receive Date: 20150102
  Receipt Date: 20150305
  Transmission Date: 20150720
  Serious: Yes (Hospitalization)
  Sender: FDA-Public Use
  Company Number: US-ACTELION-A-NJ2014-110415

PATIENT
  Age: 40 Year
  Sex: Female

DRUGS (3)
  1. ALDACTONE [Concomitant]
     Active Substance: SPIRONOLACTONE
     Dosage: 50 MG, UNK
  2. VELETRI [Suspect]
     Active Substance: EPOPROSTENOL
     Indication: PULMONARY ARTERIAL HYPERTENSION
     Dosage: 72 NG/KG, PER MIN
     Route: 042
     Dates: start: 20110503
  3. TORSEMIDE. [Concomitant]
     Active Substance: TORSEMIDE
     Dosage: 100 UNK, UNK

REACTIONS (3)
  - Pneumonia [Recovered/Resolved]
  - Haemoptysis [Recovered/Resolved]
  - Productive cough [Recovered/Resolved]

NARRATIVE: CASE EVENT DATE: 20141216
